FAERS Safety Report 12233555 (Version 1)
Quarter: 2016Q2

REPORT INFORMATION
  Report Type: Spontaneous
  Country: GB (occurrence: GB)
  Receive Date: 20160404
  Receipt Date: 20160404
  Transmission Date: 20160815
  Serious: Yes (Life-Threatening, Hospitalization)
  Sender: FDA-Public Use
  Company Number: GB-ACCORD-039287

PATIENT
  Age: 65 Year
  Sex: Female
  Weight: 89 kg

DRUGS (19)
  1. AZATHIOPRINE. [Concomitant]
     Active Substance: AZATHIOPRINE
     Dosage: INCREASING TO 3 DAILY AS DIRECTED
     Dates: start: 20150518
  2. LISINOPRIL. [Concomitant]
     Active Substance: LISINOPRIL
     Indication: HYPERTENSION
     Dosage: EVERY MORNING
     Dates: start: 20150518
  3. OMEPRAZOLE. [Concomitant]
     Active Substance: OMEPRAZOLE
     Dates: start: 20150518
  4. PARACETAMOL [Concomitant]
     Active Substance: ACETAMINOPHEN
     Dosage: ONE TO TWO TO BE TAKEN FOUR TIMES A DAY
     Dates: start: 20150518
  5. PREDNISOLONE. [Concomitant]
     Active Substance: PREDNISOLONE
     Dosage: REDUCING DOSE (REDUCE BY 0.5MG PER MONTH)
     Dates: start: 20150716
  6. LACTULOSE. [Concomitant]
     Active Substance: LACTULOSE
     Dates: start: 20150518
  7. LEVOTHYROXINE. [Concomitant]
     Active Substance: LEVOTHYROXINE
     Dosage: EACH MORNING
     Dates: start: 20150518
  8. TRAMADOL/TRAMADOL HYDROCHLORIDE [Suspect]
     Active Substance: TRAMADOL HYDROCHLORIDE
     Indication: PRODUCT USED FOR UNKNOWN INDICATION
     Dates: start: 20150918
  9. AMITRIPTYLINE [Concomitant]
     Active Substance: AMITRIPTYLINE
     Dosage: AT NIGHT
     Dates: start: 20150518
  10. ZOMORPH [Concomitant]
     Active Substance: MORPHINE SULFATE
     Dates: start: 20150518
  11. CALCICHEW D3 [Concomitant]
     Active Substance: CALCIUM\CHOLECALCIFEROL
     Dates: start: 20150518
  12. GABAPENTIN. [Concomitant]
     Active Substance: GABAPENTIN
     Dates: start: 20150518
  13. HYLO-TEAR [Concomitant]
     Dosage: 1 DROP INTO EACH EYE
     Dates: start: 20160128
  14. DICLOFENAC [Concomitant]
     Active Substance: DICLOFENAC
     Dosage: AS DIRECTED
     Dates: start: 20150518
  15. SERETIDE [Concomitant]
     Active Substance: FLUTICASONE PROPIONATE\SALMETEROL XINAFOATE
     Dates: start: 20150518
  16. SENNA [Concomitant]
     Active Substance: SENNA LEAF\SENNOSIDES\SENNOSIDES A AND B
     Indication: CONSTIPATION
     Dosage: TAKE ONE OR TWO AT NIGHT
     Dates: start: 20150518
  17. DULOXETINE. [Concomitant]
     Active Substance: DULOXETINE
     Dates: start: 20150518
  18. ORAMORPH [Concomitant]
     Active Substance: MORPHINE SULFATE
     Dates: start: 20150518, end: 20160314
  19. SALBUTAMOL [Concomitant]
     Active Substance: ALBUTEROL
     Dosage: FOUR TIMES A DAY
     Dates: start: 20150518

REACTIONS (2)
  - Sepsis [Recovered/Resolved with Sequelae]
  - Acute kidney injury [Recovered/Resolved with Sequelae]

NARRATIVE: CASE EVENT DATE: 20160314
